FAERS Safety Report 10966562 (Version 1)
Quarter: 2015Q1

REPORT INFORMATION
  Report Type: Spontaneous
  Country: US (occurrence: None)
  Receive Date: 20150226
  Receipt Date: 20150226
  Transmission Date: 20150721
  Serious: No
  Sender: FDA-Public Use
  Company Number: TPA2010A05090

PATIENT
  Age: 41 Year
  Sex: Male
  Weight: 92 kg

DRUGS (4)
  1. CRESTOR [Concomitant]
     Active Substance: ROSUVASTATIN CALCIUM
  2. OMNARIS (ALLERGY MEDICATION) [Concomitant]
  3. XYZAL (LEVOCETIRIZINE HYDROCHLORIDE) [Concomitant]
  4. ULORIC [Suspect]
     Active Substance: FEBUXOSTAT
     Indication: GOUTY ARTHRITIS
     Route: 048
     Dates: start: 20100907, end: 20100914

REACTIONS (1)
  - Chest pain [None]

NARRATIVE: CASE EVENT DATE: 20100914
